FAERS Safety Report 6546239-0 (Version None)
Quarter: 2010Q1

REPORT INFORMATION
  Report Type: 
  Country: None (occurrence: None)
  Receive Date: 20100122
  Receipt Date: 20100107
  Transmission Date: 20100710
  Serious: Yes (Hospitalization)
  Sender: FDA-Public Use
  Company Number: KR-ELI_LILLY_AND_COMPANY-KR201001001106

PATIENT
  Age: 80 Year
  Sex: Male

DRUGS (7)
  1. HUMALOG MIX 75/25 [Suspect]
     Indication: TYPE 2 DIABETES MELLITUS
     Dosage: 25 IU, OTHER
     Route: 058
     Dates: start: 20091013, end: 20100101
  2. HUMALOG MIX 75/25 [Suspect]
     Dosage: 20 IU, OTHER
     Route: 058
     Dates: start: 20091013, end: 20100101
  3. HUMALOG MIX 75/25 [Suspect]
     Dosage: 25 IU, DAILY (1/D)
     Route: 058
     Dates: start: 20100104, end: 20100104
  4. HUMALOG MIX 75/25 [Suspect]
     Dosage: 20 IU, OTHER
     Route: 058
     Dates: start: 20100106
  5. HUMALOG MIX 75/25 [Suspect]
     Dosage: 15 IU, OTHER
     Route: 058
     Dates: start: 20100106
  6. DRUGS FOR TREATMENT OF TUBERCULOSIS [Concomitant]
     Indication: TUBERCULOSIS
  7. ORAL ANTIDIABETICS [Concomitant]
     Indication: TYPE 2 DIABETES MELLITUS
     Dates: end: 20090101

REACTIONS (3)
  - COLD SWEAT [None]
  - DIZZINESS [None]
  - HYPOGLYCAEMIA [None]
